FAERS Safety Report 5070207-1 (Version None)
Quarter: 2006Q3

REPORT INFORMATION
  Report Type: 
  Country: None (occurrence: None)
  Receive Date: 20060731
  Receipt Date: 20060724
  Transmission Date: 20061208
  Serious: Yes (Disabling)
  Sender: FDA-Public Use
  Company Number: 2006090782

PATIENT
  Age: 63 Year
  Sex: Male
  Weight: 68 kg

DRUGS (4)
  1. TAHOR (ATORVASTATIN) [Suspect]
     Indication: HYPERCHOLESTEROLAEMIA
     Dosage: ORAL
     Route: 048
     Dates: start: 20051123, end: 20060404
  2. ALLOPURINOL [Concomitant]
  3. ISOBAR (METHYCLOTHIAZIDE, TRIAMETERENE) [Concomitant]
  4. LISINOPRIL [Concomitant]

REACTIONS (2)
  - TENDON DISORDER [None]
  - TENDON RUPTURE [None]
